FAERS Safety Report 6831902-4 (Version None)
Quarter: 2010Q3

REPORT INFORMATION
  Report Type: 
  Country: None (occurrence: None)
  Receive Date: 20100712
  Receipt Date: 20100701
  Transmission Date: 20110219
  Serious: Yes (Other)
  Sender: FDA-Public Use
  Company Number: US-ASTRAZENECA-2010SE30876

PATIENT
  Age: 52 Year
  Sex: Male
  Weight: 108.9 kg

DRUGS (5)
  1. ZESTORETIC [Suspect]
     Indication: PRODUCT USED FOR UNKNOWN INDICATION
     Route: 048
  2. REMICADE [Suspect]
     Indication: CROHN'S DISEASE
     Route: 042
     Dates: start: 20010101
  3. CHOLESTYRAMINE [Suspect]
     Indication: PRODUCT USED FOR UNKNOWN INDICATION
  4. SULFASALAZINE [Concomitant]
  5. NASACORT AQ [Concomitant]

REACTIONS (1)
  - POLYP [None]
